FAERS Safety Report 4865405-3 (Version None)
Quarter: 2005Q4

REPORT INFORMATION
  Report Type: 
  Country: None (occurrence: None)
  Receive Date: 20051220
  Receipt Date: 20051209
  Transmission Date: 20060501
  Serious: Yes (Death, Hospitalization)
  Sender: FDA-Public Use
  Company Number: 2005-US-00028

PATIENT
  Age: 47 Year
  Sex: Female

DRUGS (4)
  1. CLOZAPINE [Suspect]
     Indication: SCHIZOPHRENIA
     Dosage: 575 MG, QD, ORAL
     Route: 048
     Dates: start: 20010501, end: 20050801
  2. VALPROATE SODIUM [Suspect]
     Indication: CONVULSION
     Dosage: 1500 MG, QD, ORAL
     Route: 048
  3. DOCUSATE SODIUM [Concomitant]
  4. FOLIC ACID [Concomitant]

REACTIONS (6)
  - CARDIAC ARREST [None]
  - DYSPNOEA [None]
  - LOSS OF CONSCIOUSNESS [None]
  - LUNG NEOPLASM MALIGNANT [None]
  - MYOCARDIAL INFARCTION [None]
  - PULMONARY THROMBOSIS [None]
